FAERS Safety Report 22783242 (Version 2)
Quarter: 2024Q1

REPORT INFORMATION
  Report Type: Spontaneous
  Country: US (occurrence: US)
  Receive Date: 20230803
  Receipt Date: 20240129
  Transmission Date: 20240410
  Serious: No
  Sender: FDA-Public Use
  Company Number: US-SAREPTA THERAPEUTICS INC.-SRP2023-002997

PATIENT
  Age: 12 Year
  Sex: Male

DRUGS (6)
  1. AMONDYS 45 [Suspect]
     Active Substance: CASIMERSEN
     Indication: Duchenne muscular dystrophy
     Dosage: 1300 MILLIGRAM, WEEKLY
     Route: 042
     Dates: end: 202301
  2. AMONDYS 45 [Suspect]
     Active Substance: CASIMERSEN
     Dosage: 1300 MILLIGRAM, WEEKLY
     Route: 042
     Dates: start: 20230205, end: 20230205
  3. AMONDYS 45 [Suspect]
     Active Substance: CASIMERSEN
     Dosage: 1300 MILLIGRAM, WEEKLY
     Route: 042
     Dates: start: 20230219, end: 20230219
  4. AMONDYS 45 [Suspect]
     Active Substance: CASIMERSEN
     Dosage: 1300 MILLIGRAM, WEEKLY
     Route: 042
     Dates: start: 20230319, end: 20230401
  5. AMONDYS 45 [Suspect]
     Active Substance: CASIMERSEN
     Dosage: 1500 MILLIGRAM, WEEKLY
     Route: 042
     Dates: end: 202301
  6. AMONDYS 45 [Suspect]
     Active Substance: CASIMERSEN
     Dosage: 1500 MILLIGRAM, WEEKLY
     Route: 042

REACTIONS (7)
  - Malaise [Unknown]
  - Apathy [Unknown]
  - Poor venous access [Unknown]
  - Procedural anxiety [Unknown]
  - Patient uncooperative [Unknown]
  - Product distribution issue [Unknown]
  - Device issue [Unknown]

NARRATIVE: CASE EVENT DATE: 20230101
